FAERS Safety Report 13190567 (Version 1)
Quarter: 2017Q1

REPORT INFORMATION
  Report Type: Spontaneous
  Country: SI (occurrence: SI)
  Receive Date: 20170206
  Receipt Date: 20170206
  Transmission Date: 20170428
  Serious: Yes (Hospitalization)
  Sender: FDA-Public Use
  Company Number: PHHY2017SI014148

PATIENT
  Age: 30 Year
  Sex: Female

DRUGS (2)
  1. OSPEN [Suspect]
     Active Substance: PENICILLIN V
     Indication: PHARYNGOTONSILLITIS
     Dosage: 1 UNK, TID
     Route: 048
     Dates: start: 20161225, end: 20170104
  2. EUTHYROX [Concomitant]
     Active Substance: LEVOTHYROXINE SODIUM
     Indication: PRODUCT USED FOR UNKNOWN INDICATION
     Dosage: 150 UG, QD
     Route: 065

REACTIONS (5)
  - Oedema peripheral [Recovered/Resolved]
  - Urticaria [Recovered/Resolved]
  - Pruritus [Recovered/Resolved]
  - Face oedema [Recovered/Resolved]
  - Chest discomfort [Recovered/Resolved]

NARRATIVE: CASE EVENT DATE: 20170105
